FAERS Safety Report 24265392 (Version 2)
Quarter: 2024Q3

REPORT INFORMATION
  Report Type: Report from Study
  Country: CA (occurrence: CA)
  Receive Date: 20240829
  Receipt Date: 20240904
  Transmission Date: 20241017
  Serious: Yes (Other)
  Sender: BIOGEN
  Company Number: CA-BIOGEN-2024BI01279712

PATIENT
  Sex: Female

DRUGS (1)
  1. TECFIDERA [Suspect]
     Active Substance: DIMETHYL FUMARATE
     Indication: Multiple sclerosis
     Route: 050
     Dates: start: 20131118, end: 20140122

REACTIONS (10)
  - Basal cell carcinoma [Unknown]
  - Fine motor skill dysfunction [Unknown]
  - Gait disturbance [Unknown]
  - Hepatic steatosis [Recovered/Resolved]
  - Stress [Unknown]
  - Blood pressure abnormal [Unknown]
  - Trigeminal neuralgia [Unknown]
  - Constipation [Unknown]
  - Central nervous system lesion [Recovered/Resolved]
  - Urinary tract infection [Unknown]
